FAERS Safety Report 11753649 (Version 4)
Quarter: 2016Q1

REPORT INFORMATION
  Report Type: Spontaneous
  Country: US (occurrence: US)
  Receive Date: 20151119
  Receipt Date: 20160125
  Transmission Date: 20160525
  Serious: Yes (Hospitalization, Other)
  Sender: FDA-Public Use
  Company Number: US-PFIZER INC-2014293661

PATIENT
  Age: 65 Year
  Sex: Male

DRUGS (19)
  1. SUTENT [Suspect]
     Active Substance: SUNITINIB MALATE
     Indication: RENAL CELL CARCINOMA
     Dosage: 50 MG, UNK (TAKE AS DIRECTED)
     Route: 048
     Dates: start: 20141105
  2. SUTENT [Suspect]
     Active Substance: SUNITINIB MALATE
     Dosage: 25 MG, CYCLIC (28 DAYS ON AND 14 DAYS OFF)
     Route: 048
     Dates: start: 20141202
  3. LANTUS [Concomitant]
     Active Substance: INSULIN GLARGINE
     Dosage: 30 IU, 2X/DAY
     Route: 058
     Dates: start: 2006
  4. FLOMAX [Concomitant]
     Active Substance: TAMSULOSIN HYDROCHLORIDE
     Dosage: 0.4 MG, DAILY
     Route: 048
     Dates: start: 2014
  5. NORCO [Concomitant]
     Active Substance: ACETAMINOPHEN\HYDROCODONE BITARTRATE
     Dosage: 1-2 TABLET (OF 5-325 MG) Q4H PRN
     Route: 048
     Dates: start: 20141230
  6. GLUCOSAMINE [Concomitant]
     Active Substance: GLUCOSAMINE
     Dosage: 2 MG, 2X/DAY
     Route: 048
  7. LASIX [Concomitant]
     Active Substance: FUROSEMIDE
     Dosage: 40 MG, DAILY
     Route: 048
     Dates: start: 2013
  8. HUMALOG [Concomitant]
     Active Substance: INSULIN LISPRO
     Dosage: UNK, AS NEEDED (T.I.D.)
     Route: 058
     Dates: start: 2006, end: 2014
  9. NORCO [Concomitant]
     Active Substance: ACETAMINOPHEN\HYDROCODONE BITARTRATE
     Dosage: UNK, AS NEEDED
     Dates: start: 2015
  10. NOXAFIL [Concomitant]
     Active Substance: POSACONAZOLE
     Dosage: UNK, 2X/DAY
     Route: 048
  11. GENTAMICIN SULFATE. [Concomitant]
     Active Substance: GENTAMICIN SULFATE
     Dosage: UNK, DAILY
     Route: 061
     Dates: start: 2013
  12. ASPIRIN 81 [Concomitant]
     Active Substance: ASPIRIN
     Dosage: 81 MG, DAILY
     Route: 048
  13. HYDRALAZINE HCL [Concomitant]
     Active Substance: HYDRALAZINE HYDROCHLORIDE
     Dosage: 25 MG, 3X/DAY
     Route: 048
     Dates: start: 2013
  14. KLONOPIN [Concomitant]
     Active Substance: CLONAZEPAM
     Dosage: 0.5 MG, AS NEEDED (AT BEDTIME)
     Route: 048
  15. TAMSULOSIN HCL [Concomitant]
     Active Substance: TAMSULOSIN
     Dosage: 0.4 MG, DAILY
     Route: 048
  16. CIPRO [Concomitant]
     Active Substance: CIPROFLOXACIN HYDROCHLORIDE
     Dosage: 250 MG, Q 48 HOURS
     Route: 048
  17. GEMFIBROZIL. [Concomitant]
     Active Substance: GEMFIBROZIL
     Dosage: 600 MG, 2X/DAY
     Route: 048
  18. COMPAZINE [Concomitant]
     Active Substance: PROCHLORPERAZINE MALEATE
     Dosage: UNK
     Dates: start: 20141230
  19. RENAGEL [Concomitant]
     Active Substance: SEVELAMER HYDROCHLORIDE
     Dosage: 800 MG, 3X/DAY
     Route: 048

REACTIONS (23)
  - Dysgeusia [Not Recovered/Not Resolved]
  - Blood glucose decreased [Recovered/Resolved]
  - Diarrhoea [Recovered/Resolved]
  - Dyspnoea [Unknown]
  - Myalgia [Unknown]
  - Dyspepsia [Unknown]
  - Oral disorder [Not Recovered/Not Resolved]
  - Oral pain [Not Recovered/Not Resolved]
  - Blood glucose increased [Unknown]
  - Glomerular filtration rate decreased [Unknown]
  - Odynophagia [Unknown]
  - Hypokalaemia [Unknown]
  - Oral mucosal blistering [Not Recovered/Not Resolved]
  - Oedema peripheral [Unknown]
  - Tongue disorder [Not Recovered/Not Resolved]
  - Tongue blistering [Not Recovered/Not Resolved]
  - Blood urea increased [Unknown]
  - Nausea [Unknown]
  - Abdominal distension [Unknown]
  - Glossodynia [Not Recovered/Not Resolved]
  - Blood creatinine increased [Unknown]
  - Dysphagia [Unknown]
  - Gastrointestinal disorder [Unknown]
